FAERS Safety Report 6133372-0 (Version None)
Quarter: 2009Q1

REPORT INFORMATION
  Report Type: 
  Country: None (occurrence: None)
  Receive Date: 20090326
  Receipt Date: 20090316
  Transmission Date: 20090719
  Serious: Yes (Hospitalization)
  Sender: FDA-Public Use
  Company Number: BR-ELI_LILLY_AND_COMPANY-BR200903004035

PATIENT
  Sex: Female

DRUGS (2)
  1. FORTEO [Suspect]
     Indication: OSTEOPOROSIS
     Dosage: UNK, UNKNOWN
     Route: 065
     Dates: start: 20071108
  2. NEXIUM [Interacting]
     Indication: OESOPHAGITIS
     Dosage: 40 MG, UNKNOWN
     Route: 065

REACTIONS (1)
  - NEPHROLITHIASIS [None]
